FAERS Safety Report 6590085-9 (Version None)
Quarter: 2010Q1

REPORT INFORMATION
  Report Type: 
  Country: None (occurrence: None)
  Receive Date: 20100219
  Receipt Date: 20100216
  Transmission Date: 20100710
  Serious: Yes (Death, Hospitalization)
  Sender: FDA-Public Use
  Company Number: PHHY2009MX59269

PATIENT
  Age: 80 Year
  Sex: Female

DRUGS (1)
  1. DIOVAN [Suspect]
     Indication: HYPERTENSION
     Dosage: 1 TABLET (160 MG) PER DAY
     Dates: start: 20091001, end: 20091223

REACTIONS (4)
  - HEPATIC FAILURE [None]
  - HEPATIC NEOPLASM [None]
  - PORTAL HYPERTENSION [None]
  - RESPIRATORY ARREST [None]
